FAERS Safety Report 17261647 (Version 1)
Quarter: 2020Q1

REPORT INFORMATION
  Report Type: Spontaneous
  Country: IT (occurrence: IT)
  Receive Date: 20200113
  Receipt Date: 20200113
  Transmission Date: 20200409
  Serious: Yes (Other)
  Sender: FDA-Public Use
  Company Number: IT-TEVA-2020-IT-1164720

PATIENT
  Age: 32 Year
  Sex: Female

DRUGS (7)
  1. PAROXETINA ACTAVIS [Concomitant]
     Active Substance: PAROXETINE HYDROCHLORIDE
  2. DEPAKIN [Concomitant]
     Active Substance: VALPROATE SODIUM
  3. OLANZAPINE. [Suspect]
     Active Substance: OLANZAPINE
     Indication: DRUG ABUSE
     Dosage: 23 DF
     Route: 048
     Dates: start: 20190526, end: 20190526
  4. SEROQUEL [Concomitant]
     Active Substance: QUETIAPINE FUMARATE
  5. INDERAL [Concomitant]
     Active Substance: PROPRANOLOL HYDROCHLORIDE
  6. EUTIROX [Concomitant]
     Active Substance: LEVOTHYROXINE SODIUM
  7. GABAPENTIN  MOLTENI [Concomitant]
     Active Substance: GABAPENTIN

REACTIONS (2)
  - Myoclonic epilepsy [Recovering/Resolving]
  - Drug abuse [Recovering/Resolving]

NARRATIVE: CASE EVENT DATE: 20190526
